FAERS Safety Report 6583491-X (Version None)
Quarter: 2010Q1

REPORT INFORMATION
  Report Type: 
  Country: None (occurrence: None)
  Receive Date: 20100216
  Receipt Date: 20100203
  Transmission Date: 20100710
  Serious: Yes (Other)
  Sender: FDA-Public Use
  Company Number: PHEH2008US00459

PATIENT
  Sex: Female

DRUGS (7)
  1. AREDIA [Suspect]
     Dosage: 30 MG, UNK
  2. ZOMETA [Suspect]
     Indication: BONE LESION
     Dosage: 4 MG, UNK
     Dates: start: 20040618
  3. ZOMETA [Suspect]
     Dosage: 1 MG, UNK
  4. MELPHALAN HYDROCHLORIDE [Concomitant]
  5. PREDNISONE [Concomitant]
  6. LASIX [Concomitant]
  7. CIPRO [Concomitant]
     Dosage: 500 MG, BID

REACTIONS (12)
  - ANHEDONIA [None]
  - ANXIETY [None]
  - ENDODONTIC PROCEDURE [None]
  - INJURY [None]
  - OSTEOMYELITIS [None]
  - OSTEONECROSIS [None]
  - OSTEOPENIA [None]
  - PAIN [None]
  - RIB FRACTURE [None]
  - SEQUESTRECTOMY [None]
  - TOOTH EXTRACTION [None]
  - TOOTHACHE [None]
